FAERS Safety Report 5723584-X (Version None)
Quarter: 2008Q2

REPORT INFORMATION
  Report Type: 
  Country: None (occurrence: None)
  Receive Date: 20080430
  Receipt Date: 20080428
  Transmission Date: 20081010
  Serious: Yes (Other)
  Sender: FDA-Public Use
  Company Number: B0518712A

PATIENT
  Age: 46 Year
  Sex: Female

DRUGS (2)
  1. SERETIDE [Suspect]
     Indication: CHRONIC OBSTRUCTIVE PULMONARY DISEASE
     Route: 055
     Dates: start: 20050101
  2. SPIRIVA [Concomitant]
     Dosage: 18UG PER DAY
     Route: 055

REACTIONS (1)
  - SKIN ATROPHY [None]
